FAERS Safety Report 11468512 (Version 1)
Quarter: 2015Q3

REPORT INFORMATION
  Report Type: Spontaneous
  Country: US (occurrence: None)
  Receive Date: 20150904
  Receipt Date: 20150904
  Transmission Date: 20151125
  Serious: Yes (Disabling)
  Sender: FDA-Public Use
  Company Number: None

PATIENT
  Age: 30 Year
  Sex: Female
  Weight: 68.04 kg

DRUGS (3)
  1. CIPRO 250 MG GENERIC [Suspect]
     Active Substance: CIPROFLOXACIN HYDROCHLORIDE
     Indication: URINARY TRACT INFECTION
     Dates: start: 19980803, end: 20141031
  2. CALCIUM [Concomitant]
     Active Substance: CALCIUM
  3. MULTI VITAMIN [Concomitant]
     Active Substance: VITAMINS

REACTIONS (17)
  - Tendon pain [None]
  - Cyst [None]
  - Eye pain [None]
  - Panic attack [None]
  - Carpal tunnel syndrome [None]
  - Headache [None]
  - Blepharospasm [None]
  - Amnesia [None]
  - Haematochezia [None]
  - Hypoaesthesia [None]
  - Photophobia [None]
  - Anxiety [None]
  - Feeling cold [None]
  - Gastrointestinal pain [None]
  - Crying [None]
  - Blood test abnormal [None]
  - Hiatus hernia [None]
